FAERS Safety Report 9704427 (Version 1)
Quarter: 2013Q4

REPORT INFORMATION
  Report Type: Spontaneous
  Country: CH (occurrence: CH)
  Receive Date: 20131122
  Receipt Date: 20131122
  Transmission Date: 20140711
  Serious: Yes (Hospitalization, Other)
  Sender: FDA-Public Use
  Company Number: PHHY2013CH130538

PATIENT
  Age: 90 Year
  Sex: Female
  Weight: 51 kg

DRUGS (20)
  1. DIGOXIN [Suspect]
     Indication: CARDIAC DISORDER
     Dosage: 0.125 MG, QD
     Route: 048
     Dates: end: 20121111
  2. CONCOR [Interacting]
     Indication: CARDIAC DISORDER
     Dosage: 5 MG, BID
     Route: 048
  3. ASPIRIN CARDIO [Concomitant]
     Dosage: 100 MG, QD
     Route: 048
  4. ELTROXIN [Concomitant]
     Dosage: 1 DF, QW4
     Route: 048
  5. PANTOZOL [Concomitant]
     Dosage: 40 MG, QD
     Route: 048
  6. INHIBACE//CAPTOPRIL [Concomitant]
     Dosage: 5 MG, QD
     Route: 048
  7. TOREM [Concomitant]
     Dosage: 10 MG, QD
     Route: 048
  8. ALDACTONE [Concomitant]
     Dosage: 25 MG, QD
     Route: 048
  9. NITRODERM [Concomitant]
     Dosage: 10 MG, UKN
     Route: 062
     Dates: end: 201211
  10. TRITTICO [Concomitant]
     Dosage: 100 MG, QD
     Route: 048
  11. DIPIPERON [Concomitant]
     Dosage: 20 MG, QD
     Route: 048
     Dates: end: 201211
  12. ZOLPIDEM [Concomitant]
     Dosage: 10 MG, QD
     Route: 048
     Dates: end: 201211
  13. MOVICOL [Concomitant]
     Dosage: 1 DF, QD
     Route: 048
     Dates: end: 201211
  14. PARAGOL [Concomitant]
     Dosage: 20 ML, BID
     Route: 048
     Dates: end: 201211
  15. TRAMAL [Concomitant]
     Dosage: 20 GTT, QD
     Route: 048
     Dates: end: 201211
  16. DAFALGAN [Concomitant]
     Dosage: 1 G, TID
     Route: 048
     Dates: end: 201211
  17. BILOL [Concomitant]
     Dosage: UNK UKN, UNK
  18. BILOL [Concomitant]
     Dosage: 2.5 MG, PER DAY
  19. PIPAMPERONE [Concomitant]
     Dosage: UNK UKN, UNK
  20. QUETIAPINE [Concomitant]
     Dosage: LOW DOSE, UNK

REACTIONS (6)
  - Fall [Recovered/Resolved]
  - Contusion [Recovered/Resolved]
  - Atrial fibrillation [Recovered/Resolved]
  - Syncope [Recovered/Resolved]
  - Concussion [Recovered/Resolved]
  - Blood pressure increased [Recovered/Resolved]
